FAERS Safety Report 10141638 (Version 2)
Quarter: 2014Q2

REPORT INFORMATION
  Report Type: Spontaneous
  Country: FR (occurrence: FR)
  Receive Date: 20140429
  Receipt Date: 20140521
  Transmission Date: 20141212
  Serious: Yes (Life-Threatening, Hospitalization)
  Sender: FDA-Public Use
  Company Number: FR-PFIZER INC-2014115827

PATIENT
  Age: 67 Year
  Sex: Female

DRUGS (8)
  1. OGAST [Suspect]
     Dosage: 60 MG, DAILY
     Route: 048
     Dates: start: 20140220, end: 20140325
  2. MEDROL [Suspect]
     Indication: BACK PAIN
     Dosage: 3 TABLETS OF 16 MG, 1X/DAY
     Route: 048
     Dates: start: 20140220, end: 20140325
  3. FLECTOR [Suspect]
     Dosage: 50 MG, 2X/DAY
     Route: 048
     Dates: start: 20140320, end: 20140325
  4. LYRICA [Concomitant]
     Indication: BACK PAIN
     Dosage: 100MG, 2X/DAY
     Route: 048
     Dates: start: 20140201, end: 20140325
  5. LYRICA [Concomitant]
     Dosage: 150 MG, 1X/DAY
     Dates: start: 20140201, end: 20140325
  6. LAROXYL ROCHE [Concomitant]
     Indication: BACK PAIN
     Dosage: 10 GTT OF 40 MG/ML SOLUTION, 1X/DAY
     Route: 048
     Dates: start: 20140305, end: 20140325
  7. OXYCONTIN LP [Concomitant]
     Indication: BACK PAIN
     Dosage: 10 MG, 2X/DAY
     Route: 048
     Dates: start: 20140320
  8. CELEBREX [Suspect]
     Indication: BACK PAIN
     Dosage: 200 MG, UNK
     Route: 048
     Dates: start: 20140220, end: 20140320

REACTIONS (2)
  - Agranulocytosis [Recovering/Resolving]
  - Sciatica [Recovering/Resolving]
